FAERS Safety Report 19301215 (Version 2)
Quarter: 2021Q3

REPORT INFORMATION
  Report Type: Report from Study
  Country: AR (occurrence: AR)
  Receive Date: 20210525
  Receipt Date: 20210907
  Transmission Date: 20211014
  Serious: Yes (Other)
  Sender: FDA-Public Use
  Company Number: NVSC2020AR308957

PATIENT
  Age: 68 Year
  Sex: Female

DRUGS (2)
  1. FINGOLIMOD. [Suspect]
     Active Substance: FINGOLIMOD
     Indication: PRODUCT USED FOR UNKNOWN INDICATION
     Route: 065
  2. GILENYA [Suspect]
     Active Substance: FINGOLIMOD HYDROCHLORIDE
     Indication: MULTIPLE SCLEROSIS
     Dosage: 0.5 MG, QD
     Route: 048
     Dates: start: 20161102

REACTIONS (11)
  - Decreased appetite [Unknown]
  - Thyroid disorder [Recovering/Resolving]
  - Abdominal discomfort [Unknown]
  - Pain [Unknown]
  - Renal failure [Recovering/Resolving]
  - Gastrointestinal disorder [Unknown]
  - Malaise [Unknown]
  - Discomfort [Unknown]
  - Anaemia [Recovering/Resolving]
  - Red blood cell count decreased [Unknown]
  - Intraocular pressure increased [Unknown]

NARRATIVE: CASE EVENT DATE: 20201001
